APPROVED DRUG PRODUCT: CAMZYOS
Active Ingredient: MAVACAMTEN
Strength: 5MG
Dosage Form/Route: CAPSULE;ORAL
Application: N214998 | Product #002
Applicant: BRISTOL MYERS SQUIBB CO
Approved: Apr 28, 2022 | RLD: Yes | RS: Yes | Type: RX

PATENTS:
Patent 9585883 | Expires: Jun 19, 2034
Patent RE50050 | Expires: Apr 28, 2036

EXCLUSIVITY:
Code: M-297 | Date: Jun 15, 2026
Code: NCE | Date: Apr 28, 2027
Code: ODE-398 | Date: Apr 28, 2029